FAERS Safety Report 6772534-6 (Version None)
Quarter: 2010Q2

REPORT INFORMATION
  Report Type: 
  Country: None (occurrence: None)
  Receive Date: 20100616
  Receipt Date: 20091112
  Transmission Date: 20101027
  Serious: No
  Sender: FDA-Public Use
  Company Number: US-ASTRAZENECA-2009SE26428

PATIENT
  Age: 81 Year
  Sex: Female
  Weight: 54.4 kg

DRUGS (12)
  1. PULMICORT FLEXHALER [Suspect]
     Indication: EMPHYSEMA
     Route: 055
     Dates: start: 20060101
  2. PRILOSEC [Suspect]
     Indication: GASTROOESOPHAGEAL REFLUX DISEASE
     Route: 048
  3. PROVENTIL [Concomitant]
  4. PREMARIN [Concomitant]
  5. MIRALAX [Concomitant]
  6. LEVOXYL [Concomitant]
  7. NORVASC [Concomitant]
  8. TYLENOL [Concomitant]
  9. STOOL SOFTENER [Concomitant]
  10. VITAMIN A [Concomitant]
  11. VITAMIN C [Concomitant]
  12. MULTI-VITAMIN [Concomitant]

REACTIONS (1)
  - NASAL CONGESTION [None]
